FAERS Safety Report 11655858 (Version 2)
Quarter: 2016Q1

REPORT INFORMATION
  Report Type: Report from Study
  Country: US (occurrence: US)
  Receive Date: 20151023
  Receipt Date: 20160121
  Transmission Date: 20160525
  Serious: No
  Sender: FDA-Public Use
  Company Number: US-AMGEN-USASP2015094671

PATIENT
  Age: 69 Year
  Sex: Male

DRUGS (3)
  1. KYPROLIS [Suspect]
     Active Substance: CARFILZOMIB
     Dosage: UNK
     Route: 042
     Dates: start: 201507
  2. KYPROLIS [Suspect]
     Active Substance: CARFILZOMIB
     Dosage: UNK, QWK
     Route: 065
     Dates: start: 20150804
  3. KYPROLIS [Suspect]
     Active Substance: CARFILZOMIB
     Indication: PLASMA CELL MYELOMA
     Dosage: 3 WEEKS ON AND 1 WEEK OFF
     Route: 065
     Dates: start: 201506, end: 201511

REACTIONS (7)
  - Dizziness [Not Recovered/Not Resolved]
  - Constipation [Unknown]
  - Back disorder [Unknown]
  - Inappropriate schedule of drug administration [Unknown]
  - Sensation of foreign body [Not Recovered/Not Resolved]
  - Dyspnoea [Not Recovered/Not Resolved]
  - Back pain [Unknown]

NARRATIVE: CASE EVENT DATE: 2015
